FAERS Safety Report 7079352-2 (Version None)
Quarter: 2010Q4

REPORT INFORMATION
  Report Type: 
  Country: None (occurrence: None)
  Receive Date: 20101102
  Receipt Date: 20101026
  Transmission Date: 20110411
  Serious: Yes (Life-Threatening, Hospitalization, Other)
  Sender: FDA-Public Use
  Company Number: FR-BAYER-201043805GPV

PATIENT
  Age: 46 Year
  Sex: Female

DRUGS (2)
  1. ULTRAVIST 370 [Suspect]
     Indication: COMPUTERISED TOMOGRAM
     Route: 042
     Dates: start: 20100906, end: 20100906
  2. CORTICOTHERAPY [Concomitant]
     Route: 065
     Dates: start: 20101001, end: 20101001

REACTIONS (18)
  - AGITATION [None]
  - BLOOD PRESSURE IMMEASURABLE [None]
  - CYANOSIS [None]
  - DYSPNOEA [None]
  - ERYTHEMA [None]
  - EYE ROLLING [None]
  - HEART RATE INCREASED [None]
  - LABILE BLOOD PRESSURE [None]
  - LIP OEDEMA [None]
  - LIVEDO RETICULARIS [None]
  - LOSS OF CONSCIOUSNESS [None]
  - MALAISE [None]
  - OXYGEN SATURATION IMMEASURABLE [None]
  - PERIPHERAL COLDNESS [None]
  - PULSE ABSENT [None]
  - RESPIRATION ABNORMAL [None]
  - TONGUE BITING [None]
  - URINARY INCONTINENCE [None]
